FAERS Safety Report 9647237 (Version 2)
Quarter: 2013Q4

REPORT INFORMATION
  Report Type: Spontaneous
  Country: US (occurrence: US)
  Receive Date: 20131027
  Receipt Date: 20131027
  Transmission Date: 20140711
  Serious: Yes (Other)
  Sender: FDA-Public Use
  Company Number: US-NAPPMUNDI-USA-2013-0105161

PATIENT
  Sex: Male

DRUGS (3)
  1. OXYCONTIN (NDA 22-272) [Suspect]
     Indication: PAIN IN EXTREMITY
     Dosage: 40 MG, Q12H
     Route: 048
  2. OXYCONTIN (NDA 22-272) [Suspect]
     Indication: NEURALGIA
     Dosage: 40 MG, TID
     Route: 048
     Dates: start: 2012, end: 201307
  3. OXYCONTIN (NDA 22-272) [Suspect]
     Dosage: 80 MG, BID
     Route: 048

REACTIONS (8)
  - Drug dependence [Unknown]
  - Drug withdrawal syndrome [Unknown]
  - Night sweats [Unknown]
  - Anxiety [Unknown]
  - Nervousness [Unknown]
  - Drug effect decreased [Unknown]
  - Drug tolerance [Unknown]
  - Drug ineffective [Recovered/Resolved]
